FAERS Safety Report 7116641-7 (Version None)
Quarter: 2010Q4

REPORT INFORMATION
  Report Type: 
  Country: None (occurrence: None)
  Receive Date: 20101122
  Receipt Date: 20101115
  Transmission Date: 20110411
  Serious: Yes (Hospitalization, Congenital Anomaly)
  Sender: FDA-Public Use
  Company Number: A0894296A

PATIENT
  Sex: Male
  Weight: 2.3 kg

DRUGS (2)
  1. PAXIL [Suspect]
     Dates: end: 20030101
  2. PAROXETINE HYDROCHLORIDE [Suspect]
     Dates: start: 20030101, end: 20040101

REACTIONS (7)
  - CLEFT LIP AND PALATE [None]
  - DRUG EXPOSURE DURING PREGNANCY [None]
  - HYPOPITUITARISM [None]
  - PENILE SIZE REDUCED [None]
  - TRACHEAL MASS [None]
  - VENTRICULAR SEPTAL DEFECT [None]
  - VOCAL CORD DISORDER [None]
